FAERS Safety Report 6822258-1 (Version None)
Quarter: 2010Q3

REPORT INFORMATION
  Report Type: 
  Country: None (occurrence: None)
  Receive Date: 20100707
  Receipt Date: 20100707
  Transmission Date: 20110219
  Serious: Yes (Life-Threatening, Other)
  Sender: FDA-Public Use
  Company Number: None

PATIENT
  Age: 57 Year
  Sex: Male
  Weight: 90.9 kg

DRUGS (2)
  1. CIPRO [Suspect]
     Indication: PROSTATITIS
     Dosage: 500 MG TWICE DAILY
     Dates: start: 20100604, end: 20100610
  2. CIPRO [Suspect]
     Indication: TESTICULAR PAIN
     Dosage: 500 MG TWICE DAILY
     Dates: start: 20100604, end: 20100610

REACTIONS (3)
  - DYSPNOEA [None]
  - OESOPHAGEAL PAIN [None]
  - OROPHARYNGEAL PAIN [None]
